FAERS Safety Report 23563450 (Version 2)
Quarter: 2024Q2

REPORT INFORMATION
  Report Type: Spontaneous
  Country: JP (occurrence: JP)
  Receive Date: 20240226
  Receipt Date: 20240430
  Transmission Date: 20240716
  Serious: Yes (Hospitalization, Other)
  Sender: FDA-Public Use
  Company Number: JP-TAKEDA-2024TJP002727

PATIENT
  Age: 10 Year
  Sex: Female
  Weight: 19.7 kg

DRUGS (9)
  1. TEDUGLUTIDE [Suspect]
     Active Substance: TEDUGLUTIDE
     Indication: Short-bowel syndrome
     Dosage: 0.09 MILLILITER, QD
     Route: 058
     Dates: start: 20231115
  2. TEDUGLUTIDE [Suspect]
     Active Substance: TEDUGLUTIDE
     Indication: Short-bowel syndrome
     Dosage: 0.09 MILLILITER, QD
     Route: 058
     Dates: start: 20231115
  3. TEDUGLUTIDE [Suspect]
     Active Substance: TEDUGLUTIDE
     Indication: Short-bowel syndrome
     Dosage: 0.09 MILLILITER, QD
     Route: 058
     Dates: start: 20231115
  4. TEDUGLUTIDE [Suspect]
     Active Substance: TEDUGLUTIDE
     Indication: Short-bowel syndrome
     Dosage: 0.09 MILLILITER, QD
     Route: 058
     Dates: start: 20231115
  5. BIO-THREE [Concomitant]
     Active Substance: HERBALS
     Dosage: 1.5 GRAM, TID
     Route: 048
  6. MIYA-BM [Concomitant]
     Active Substance: CLOSTRIDIUM BUTYRICUM SPORES STRAIN M-55
     Dosage: 1.5 GRAM, TID
     Route: 048
  7. FAMOTIDINE [Concomitant]
     Active Substance: FAMOTIDINE
     Dosage: 12 MILLIGRAM, BID
     Route: 048
  8. SUPLATAST TOSILATE [Concomitant]
     Active Substance: SUPLATAST TOSILATE
     Dosage: 90 MILLIGRAM, BID
     Route: 048
  9. PRANLUKAST [Concomitant]
     Active Substance: PRANLUKAST
     Dosage: 100 MILLIGRAM, BID
     Route: 048

REACTIONS (1)
  - Pneumatosis intestinalis [Recovered/Resolved]

NARRATIVE: CASE EVENT DATE: 20240204
